FAERS Safety Report 15435709 (Version 1)
Quarter: 2018Q3

REPORT INFORMATION
  Report Type: Spontaneous
  Country: US (occurrence: US)
  Receive Date: 20180924
  Receipt Date: 20180924
  Transmission Date: 20181010
  Serious: Yes (Hospitalization)
  Sender: FDA-Public Use
  Company Number: None

PATIENT
  Age: 64 Year
  Sex: Male
  Weight: 77 kg

DRUGS (5)
  1. PROCARBAZINE [Suspect]
     Active Substance: PROCARBAZINE
     Dates: end: 20150810
  2. CYTARABINE. [Suspect]
     Active Substance: CYTARABINE
     Dates: end: 20151202
  3. VINCRISTINE SULFATE. [Suspect]
     Active Substance: VINCRISTINE SULFATE
     Dates: end: 20150623
  4. RITUXIMAB (MOAB C2B8 ANTI CD20, CHIMERIC) [Suspect]
     Active Substance: RITUXIMAB
     Dates: end: 20150622
  5. METHOTREXATE. [Suspect]
     Active Substance: METHOTREXATE
     Dates: end: 20150819

REACTIONS (7)
  - Diplopia [None]
  - Ischaemic stroke [None]
  - Vision blurred [None]
  - Facial paralysis [None]
  - Asthenia [None]
  - Aphasia [None]
  - Cerebellar infarction [None]

NARRATIVE: CASE EVENT DATE: 20170615
